FAERS Safety Report 23579122 (Version 1)
Quarter: 2024Q1

REPORT INFORMATION
  Report Type: Spontaneous
  Country: US (occurrence: US)
  Receive Date: 20240229
  Receipt Date: 20240229
  Transmission Date: 20240409
  Serious: No
  Sender: FDA-Public Use
  Company Number: US-UNITED THERAPEUTICS-UNT-2024-005446

PATIENT
  Age: 54 Year
  Sex: Female

DRUGS (3)
  1. REMODULIN [Suspect]
     Active Substance: TREPROSTINIL
     Indication: Pulmonary arterial hypertension
     Dosage: UNK, CONTINUING
     Route: 041
     Dates: start: 20231128
  2. OPSUMIT [Suspect]
     Active Substance: MACITENTAN
     Indication: Pulmonary arterial hypertension
     Dosage: 10 MG (1 TIME EVERY 1 DAY), QD
     Route: 048
     Dates: start: 202309
  3. OPSUMIT [Suspect]
     Active Substance: MACITENTAN
     Dosage: 10 MG (1 TIME EVERY 1 DAY), QD
     Route: 048
     Dates: start: 202310

REACTIONS (11)
  - Headache [Recovering/Resolving]
  - Nausea [Not Recovered/Not Resolved]
  - Pain [Not Recovered/Not Resolved]
  - Malaise [Not Recovered/Not Resolved]
  - Condition aggravated [Not Recovered/Not Resolved]
  - Loss of personal independence in daily activities [Not Recovered/Not Resolved]
  - Gastrointestinal disorder [Unknown]
  - Tinnitus [Unknown]
  - Decreased appetite [Not Recovered/Not Resolved]
  - Gingival bleeding [Unknown]
  - Frequent bowel movements [Recovered/Resolved]

NARRATIVE: CASE EVENT DATE: 20231101
